FAERS Safety Report 14818654 (Version 1)
Quarter: 2018Q2

REPORT INFORMATION
  Report Type: Spontaneous
  Country: US (occurrence: US)
  Receive Date: 20180427
  Receipt Date: 20180427
  Transmission Date: 20180711
  Serious: Yes (Other)
  Sender: FDA-Public Use
  Company Number: US-PFIZER INC-2018172355

PATIENT
  Age: 54 Year
  Sex: Male

DRUGS (1)
  1. DILANTIN [Suspect]
     Active Substance: PHENYTOIN
     Indication: SEIZURE
     Dosage: 100 MG, THREE TIMES A DAY
     Route: 048

REACTIONS (3)
  - Drug effect incomplete [Not Recovered/Not Resolved]
  - Muscle twitching [Not Recovered/Not Resolved]
  - Intentional product misuse [Unknown]
